FAERS Safety Report 19024747 (Version 1)
Quarter: 2021Q1

REPORT INFORMATION
  Report Type: Spontaneous
  Country: US (occurrence: US)
  Receive Date: 20210318
  Receipt Date: 20210318
  Transmission Date: 20210420
  Serious: Yes (Hospitalization, Other)
  Sender: FDA-Public Use
  Company Number: US-BIOVITRUM-2021US2614

PATIENT
  Sex: Female
  Weight: 3 kg

DRUGS (6)
  1. SYNAGIS [Suspect]
     Active Substance: PALIVIZUMAB
     Indication: RESPIRATORY DISTRESS
     Dosage: 50MG/0.5ML VL LIQUID
     Route: 030
  2. MULTIVITAMIN [Concomitant]
     Active Substance: VITAMINS
     Dosage: 9 MG/15 ML LIQUID
  3. SYNAGIS [Suspect]
     Active Substance: PALIVIZUMAB
     Indication: LUNG ASSIST DEVICE THERAPY
  4. SYNAGIS [Suspect]
     Active Substance: PALIVIZUMAB
     Indication: PREMATURE BABY
  5. SYNAGIS [Suspect]
     Active Substance: PALIVIZUMAB
     Indication: PULMONARY HYPERTENSION
  6. LOVENOX [Concomitant]
     Active Substance: ENOXAPARIN SODIUM
     Dosage: 100 MG/ML SYRINGE

REACTIONS (1)
  - Thrombosis [Unknown]
